FAERS Safety Report 7210135-6 (Version None)
Quarter: 2011Q1

REPORT INFORMATION
  Report Type: 
  Country: None (occurrence: None)
  Receive Date: 20110105
  Receipt Date: 20110103
  Transmission Date: 20110831
  Serious: Yes (Hospitalization)
  Sender: FDA-Public Use
  Company Number: IL-BRISTOL-MYERS SQUIBB COMPANY-15415581

PATIENT
  Age: 51 Year
  Sex: Male

DRUGS (7)
  1. METFORMIN HCL [Suspect]
     Dosage: CONTINUING
  2. PLACEBO [Suspect]
  3. LANTUS [Suspect]
  4. BLINDED: SAXAGLIPTIN [Suspect]
     Indication: TYPE 2 DIABETES MELLITUS
     Dosage: LAST DOSE ON 24NOV10.
     Dates: start: 20101123, end: 20101125
  5. ANGIOTENSIN CONVERTING ENZYME [Concomitant]
     Dates: start: 20101123
  6. ASPIRIN [Concomitant]
     Dosage: 1 DF= LESS THAN 100MG.
     Dates: start: 20101123
  7. GLIMEPIRIDE [Suspect]
     Dosage: CONTINUING

REACTIONS (1)
  - PANCREATITIS ACUTE [None]
